FAERS Safety Report 20985828 (Version 2)
Quarter: 2022Q4

REPORT INFORMATION
  Report Type: Report from Study
  Country: US (occurrence: US)
  Receive Date: 20220621
  Receipt Date: 20221110
  Transmission Date: 20230112
  Serious: Yes (Other)
  Sender: FDA-Public Use
  Company Number: US-BRISTOL-MYERS SQUIBB COMPANY-2022-059214

PATIENT
  Age: 52 Year
  Sex: Male
  Weight: 70.306 kg

DRUGS (1)
  1. POMALYST [Suspect]
     Active Substance: POMALIDOMIDE
     Indication: Plasma cell myeloma
     Dosage: TAKE 1 CAPSULE EVERY MORNING BEFORE BREAKFAST ON DAYS 1 THROUGH 21 OF EACH 28 DAY CYCLE. ?ADDITIONAL
     Route: 048
     Dates: start: 20190219

REACTIONS (5)
  - Foot fracture [Unknown]
  - Hand fracture [Unknown]
  - Rib fracture [Unknown]
  - Fall [Unknown]
  - Arthropathy [Unknown]

NARRATIVE: CASE EVENT DATE: 20220101
